FAERS Safety Report 6032833-2 (Version None)
Quarter: 2009Q1

REPORT INFORMATION
  Report Type: 
  Country: None (occurrence: None)
  Receive Date: 20090109
  Receipt Date: 20081231
  Transmission Date: 20090719
  Serious: Yes (Hospitalization)
  Sender: FDA-Public Use
  Company Number: PHHO2008US13777

PATIENT
  Sex: Female
  Weight: 68.1 kg

DRUGS (4)
  1. ERL 080A ERL+TAB [Suspect]
     Indication: RENAL TRANSPLANT
     Dosage: 1080MG/DAILY
     Route: 048
     Dates: start: 20080905, end: 20081006
  2. IMURAN [Concomitant]
     Indication: RENAL TRANSPLANT
     Dosage: 150 MG, QD
     Route: 048
     Dates: start: 20081006
  3. TACROLIMUS [Concomitant]
     Indication: RENAL TRANSPLANT
     Dosage: 2-4MG/DAY
     Dates: start: 20081023, end: 20081110
  4. PREDNISONE [Concomitant]
     Indication: RENAL TRANSPLANT
     Dosage: 15-25MG/DAY
     Dates: start: 20081023, end: 20081110

REACTIONS (5)
  - BK VIRUS INFECTION [None]
  - CYTOMEGALOVIRUS VIRAEMIA [None]
  - DIVERTICULUM [None]
  - PLEURAL CALCIFICATION [None]
  - SPLENOMEGALY [None]
